FAERS Safety Report 24088401 (Version 2)
Quarter: 2025Q3

REPORT INFORMATION
  Report Type: Spontaneous
  Country: US (occurrence: US)
  Receive Date: 20240715
  Receipt Date: 20250916
  Transmission Date: 20251021
  Serious: Yes (Life-Threatening, Hospitalization)
  Sender: SANOFI AVENTIS
  Company Number: US-SA-SAC20240711000666

PATIENT
  Sex: Male

DRUGS (5)
  1. ALPROLIX [Suspect]
     Active Substance: EFTRENONACOG ALFA
     Indication: Factor IX deficiency
     Route: 065
     Dates: start: 2014, end: 20210314
  2. ALPROLIX [Suspect]
     Active Substance: EFTRENONACOG ALFA
     Indication: Factor IX deficiency
     Route: 065
     Dates: start: 2014, end: 20210314
  3. TRANEXAMIC ACID [Concomitant]
     Active Substance: TRANEXAMIC ACID
     Indication: Factor IX deficiency
     Dates: start: 20210304
  4. BENEFIX [Concomitant]
     Active Substance: COAGULATION FACTOR IX RECOMBINANT HUMAN\ISOPROPYL ALCOHOL
  5. HUMATE-P [Concomitant]
     Active Substance: HUMAN COAGULATION FACTOR VIII/VON WILLEBRAND FACTOR COMPLEX
     Indication: Von Willebrand^s disease
     Dates: start: 20210304

REACTIONS (6)
  - Swollen tongue [Unknown]
  - Stridor [Unknown]
  - Pharyngeal swelling [Unknown]
  - Post procedural haemorrhage [Unknown]
  - Adenotonsillectomy [Unknown]
  - Off label use [Unknown]

NARRATIVE: CASE EVENT DATE: 20210304
